FAERS Safety Report 8278992 (Version 6)
Quarter: 2013Q1

REPORT INFORMATION
  Report Type: Report from Study
  Country: TW (occurrence: TW)
  Receive Date: 20111208
  Receipt Date: 20130314
  Transmission Date: 20140127
  Serious: Yes (Death, Life-Threatening, Hospitalization, Other)
  Sender: FDA-Public Use
  Company Number: TW-BAYER-2011-113698

PATIENT
  Age: 48 Year
  Sex: Male
  Weight: 67.7 kg

DRUGS (10)
  1. SORAFENIB (RAF KINASE INHIBITOR) [Suspect]
     Indication: HEPATOCELLULAR CARCINOMA
     Dosage: 400 MG, BID
     Route: 048
     Dates: start: 20111005, end: 20111025
  2. SORAFENIB (RAF KINASE INHIBITOR) [Suspect]
     Indication: HEPATOCELLULAR CARCINOMA
     Dosage: 400 MG, BID
     Route: 048
     Dates: start: 20111026, end: 20111114
  3. SORAFENIB (RAF KINASE INHIBITOR) [Suspect]
     Indication: HEPATOCELLULAR CARCINOMA
     Dosage: 400 MG, QD
     Route: 048
     Dates: start: 20111115, end: 20111115
  4. TAMSULOSIN [Concomitant]
     Dosage: 0.2 MG, UNK
     Route: 048
  5. OXYBUTYNIN [Concomitant]
     Dosage: 5 MG, UNK
     Route: 048
  6. ENTECAVIR [Concomitant]
     Dosage: 0.5 MG, UNK
     Route: 048
  7. LACTULOSE SYRUP [Concomitant]
     Dosage: 300 ML, TID
     Route: 048
  8. ULTRACET [Concomitant]
     Route: 048
  9. METOCLOPRAMIDE [Concomitant]
     Dosage: 10 MG, TID
  10. ESOMEPRAZOLE [Concomitant]
     Dosage: 40 MG, UNK

REACTIONS (6)
  - Acute respiratory failure [Fatal]
  - Hepatic failure [Not Recovered/Not Resolved]
  - Sepsis [Not Recovered/Not Resolved]
  - Hepatic function abnormal [Not Recovered/Not Resolved]
  - Constipation [Recovered/Resolved]
  - Oesophageal varices haemorrhage [Not Recovered/Not Resolved]
